FAERS Safety Report 17726847 (Version 1)
Quarter: 2020Q2

REPORT INFORMATION
  Report Type: Spontaneous
  Country: US (occurrence: US)
  Receive Date: 20200430
  Receipt Date: 20200430
  Transmission Date: 20200714
  Serious: No
  Sender: FDA-Public Use
  Company Number: US-VISTAPHARM, INC.-VER202003-000520

PATIENT
  Sex: Female

DRUGS (1)
  1. NYSTATIN ORAL SUSPENSION, USP 100,000 UNITS PER ML CONTAINS ALCOHOL [Suspect]
     Active Substance: NYSTATIN
     Indication: CANDIDA INFECTION
     Dosage: 2 OR 3 TIMES LIKE A MOUTHWASH
     Dates: start: 20200229, end: 20200229

REACTIONS (5)
  - Nausea [Recovered/Resolved]
  - Product quality issue [Recovered/Resolved]
  - Stomatitis [Recovered/Resolved]
  - Oral pain [Recovered/Resolved]
  - Product use complaint [Recovered/Resolved]
